FAERS Safety Report 8059173-4 (Version None)
Quarter: 2012Q1

REPORT INFORMATION
  Report Type: 
  Country: None (occurrence: None)
  Receive Date: 20120120
  Receipt Date: 20120111
  Transmission Date: 20120608
  Serious: Yes (Other)
  Sender: FDA-Public Use
  Company Number: US-PFIZER INC-2012009478

PATIENT
  Sex: Female
  Weight: 72.6 kg

DRUGS (2)
  1. SYNTHROID [Concomitant]
     Indication: BASEDOW'S DISEASE
     Dosage: 150 UG, DAILY
  2. PREMARIN [Suspect]
     Indication: HORMONE REPLACEMENT THERAPY
     Dosage: 1.25 MG, DAILY
     Route: 048
     Dates: start: 20000201

REACTIONS (3)
  - BREAST CANCER FEMALE [None]
  - ALOPECIA [None]
  - MALAISE [None]
